FAERS Safety Report 25473712 (Version 3)
Quarter: 2025Q3

REPORT INFORMATION
  Report Type: Spontaneous
  Country: US (occurrence: US)
  Receive Date: 20250624
  Receipt Date: 20250730
  Transmission Date: 20251021
  Serious: No
  Sender: PFIZER
  Company Number: US-PFIZER INC-PV202500059157

PATIENT
  Age: 43 Year
  Sex: Female
  Weight: 77.098 kg

DRUGS (1)
  1. EUCRISA [Suspect]
     Active Substance: CRISABOROLE
     Indication: Rash
     Route: 061
     Dates: start: 202501

REACTIONS (6)
  - Eye irritation [Recovered/Resolved]
  - Accidental exposure to product [Recovered/Resolved]
  - Exposure via eye contact [Recovered/Resolved]
  - Off label use [Unknown]
  - Product physical consistency issue [Unknown]
  - Poor quality product administered [Unknown]

NARRATIVE: CASE EVENT DATE: 20250101
